FAERS Safety Report 18311524 (Version 1)
Quarter: 2020Q3

REPORT INFORMATION
  Report Type: Spontaneous
  Country: US (occurrence: US)
  Receive Date: 20200924
  Receipt Date: 20200924
  Transmission Date: 20201103
  Serious: No
  Sender: FDA-Public Use
  Company Number: None

PATIENT
  Age: 61 Year
  Sex: Female
  Weight: 79.65 kg

DRUGS (7)
  1. NOVOLOG [Concomitant]
     Active Substance: INSULIN ASPART
  2. LEVOTHYROXINE. [Concomitant]
     Active Substance: LEVOTHYROXINE
  3. BASAGLAR [Concomitant]
     Active Substance: INSULIN GLARGINE
  4. SIMVASTATIN. [Suspect]
     Active Substance: SIMVASTATIN
     Indication: BLOOD CHOLESTEROL INCREASED
     Dosage: QUANTITY:1 TABLET(S);?
     Route: 048
     Dates: start: 20200531, end: 20200621
  5. MULTI?VITAMIN (SENTRY SENIOR) [Concomitant]
  6. LISINOPRIL. [Concomitant]
     Active Substance: LISINOPRIL
  7. METFORMIN [Concomitant]
     Active Substance: METFORMIN HYDROCHLORIDE

REACTIONS (6)
  - Cerebrovascular accident [None]
  - Expired product administered [None]
  - Blood cholesterol abnormal [None]
  - Hypoaesthesia [None]
  - Limb discomfort [None]
  - Musculoskeletal disorder [None]

NARRATIVE: CASE EVENT DATE: 20200618
